FAERS Safety Report 6142992-9 (Version None)
Quarter: 2009Q2

REPORT INFORMATION
  Report Type: 
  Country: None (occurrence: None)
  Receive Date: 20090403
  Receipt Date: 20090330
  Transmission Date: 20091009
  Serious: Yes (Hospitalization, Other)
  Sender: FDA-Public Use
  Company Number: JP-ROCHE-624824

PATIENT
  Age: 1 Year
  Sex: Female
  Weight: 9.5 kg

DRUGS (7)
  1. GANCICLOVIR [Suspect]
     Route: 065
  2. DIAZEPAM [Suspect]
     Route: 042
  3. METHYLPREDNISOLONE 4MG TAB [Suspect]
     Indication: DRUG USE FOR UNKNOWN INDICATION
     Route: 065
  4. METHYLPREDNISOLONE 4MG TAB [Suspect]
     Route: 065
  5. CYCLOSPORINE [Suspect]
     Indication: DRUG USE FOR UNKNOWN INDICATION
     Route: 042
  6. CYCLOSPORINE [Suspect]
     Route: 042
  7. PREDNISOLONE [Concomitant]
     Indication: DRUG USE FOR UNKNOWN INDICATION
     Route: 048

REACTIONS (3)
  - CLONIC CONVULSION [None]
  - HISTIOCYTOSIS HAEMATOPHAGIC [None]
  - JUVENILE ARTHRITIS [None]
